FAERS Safety Report 4930142-3 (Version None)
Quarter: 2006Q1

REPORT INFORMATION
  Report Type: 
  Country: None (occurrence: None)
  Receive Date: 20060228
  Receipt Date: 20060208
  Transmission Date: 20060701
  Serious: Yes (Other)
  Sender: FDA-Public Use
  Company Number: AU200602001996

PATIENT
  Age: 26 Year
  Sex: Female
  Weight: 86.5 kg

DRUGS (3)
  1. DULOXETINE HYDROCHLORIDE (DULOXETINE HYDROCHLORIDE) CAPSULE [Suspect]
     Indication: MAJOR DEPRESSION
     Dosage: SEE IMAGE
     Route: 048
     Dates: start: 20050318, end: 20060128
  2. DULOXETINE HYDROCHLORIDE (DULOXETINE HYDROCHLORIDE) CAPSULE [Suspect]
     Indication: MAJOR DEPRESSION
     Dosage: SEE IMAGE
     Route: 048
     Dates: start: 20060203
  3. NORMISON (TEMAZEPAM) [Concomitant]

REACTIONS (2)
  - FAMILY STRESS [None]
  - MULTIPLE DRUG OVERDOSE INTENTIONAL [None]
